FAERS Safety Report 8569957-1 (Version None)
Quarter: 2012Q3

REPORT INFORMATION
  Report Type: 
  Country: None (occurrence: None)
  Receive Date: 20120803
  Receipt Date: 20120621
  Transmission Date: 20120928
  Serious: No
  Sender: FDA-Public Use
  Company Number: US-ABBOTT-12P-163-0948526-00

PATIENT
  Sex: Female
  Weight: 65.83 kg

DRUGS (9)
  1. ZETIA [Concomitant]
     Indication: HYPERLIPIDAEMIA
  2. NIASPAN [Suspect]
     Indication: HYPERLIPIDAEMIA
     Route: 048
  3. SYNTHROID [Concomitant]
     Indication: PRODUCT USED FOR UNKNOWN INDICATION
  4. VITAMIN D [Concomitant]
     Indication: PRODUCT USED FOR UNKNOWN INDICATION
  5. ASPIRIN [Concomitant]
     Indication: PRODUCT USED FOR UNKNOWN INDICATION
  6. PROPAFENONE  PROPEFONONE [Concomitant]
     Indication: ARRHYTHMIA
  7. DIGOXIN [Concomitant]
     Indication: ARRHYTHMIA
  8. COQ10 [Concomitant]
     Indication: PRODUCT USED FOR UNKNOWN INDICATION
  9. TRIAMTERENE [Concomitant]
     Indication: DIURETIC THERAPY

REACTIONS (3)
  - FLUSHING [None]
  - JOINT INJURY [None]
  - ARTHRALGIA [None]
